FAERS Safety Report 13483627 (Version 1)
Quarter: 2017Q2

REPORT INFORMATION
  Report Type: Spontaneous
  Country: NL (occurrence: NL)
  Receive Date: 20170426
  Receipt Date: 20170426
  Transmission Date: 20170830
  Serious: Yes (Life-Threatening)
  Sender: FDA-Public Use
  Company Number: NL-UCBSA-2017015839

PATIENT
  Age: 72 Year
  Sex: Male

DRUGS (1)
  1. LEVOCETIRIZINE HYDROCHLORIDE [Suspect]
     Active Substance: LEVOCETIRIZINE HYDROCHLORIDE
     Indication: RASH
     Dosage: 5 MG, ONCE DAILY (QD)
     Dates: start: 20170407, end: 20170409

REACTIONS (2)
  - Blood pressure decreased [Recovered/Resolved]
  - Malaise [Recovered/Resolved]

NARRATIVE: CASE EVENT DATE: 20170409
